FAERS Safety Report 17610445 (Version 1)
Quarter: 2020Q2

REPORT INFORMATION
  Report Type: Spontaneous
  Country: US (occurrence: US)
  Receive Date: 20200401
  Receipt Date: 20200401
  Transmission Date: 20200713
  Serious: No
  Sender: FDA-Public Use
  Company Number: US-PFIZER INC-2020133754

PATIENT
  Age: 71 Year
  Sex: Female

DRUGS (2)
  1. CELEBREX [Suspect]
     Active Substance: CELECOXIB
  2. PREDNISONE. [Suspect]
     Active Substance: PREDNISONE

REACTIONS (2)
  - Arthralgia [Unknown]
  - Arthritis [Unknown]
